FAERS Safety Report 20510465 (Version 1)
Quarter: 2022Q1

REPORT INFORMATION
  Report Type: Other
  Country: CN (occurrence: CN)
  Receive Date: 20220224
  Receipt Date: 20220224
  Transmission Date: 20220424
  Serious: Yes (Hospitalization, Other)
  Sender: FDA-Public Use
  Company Number: CN-GYP-001028

PATIENT
  Age: 66 Year
  Sex: Female

DRUGS (3)
  1. PREDNISONE [Suspect]
     Active Substance: PREDNISONE
     Indication: Thyroid B-cell lymphoma
     Dosage: DAYS 1 TO 5
     Route: 048
  2. CYCLOPHOSPHAMIDE [Suspect]
     Active Substance: CYCLOPHOSPHAMIDE
     Indication: Thyroid B-cell lymphoma
     Dosage: ON DAY 1
     Route: 042
  3. VINCRISTINE [Suspect]
     Active Substance: VINCRISTINE
     Indication: Thyroid B-cell lymphoma
     Dosage: ON DAY 1
     Route: 042

REACTIONS (2)
  - Tracheo-oesophageal fistula [Unknown]
  - Therapeutic product effect incomplete [Unknown]
